FAERS Safety Report 26112495 (Version 1)
Quarter: 2025Q4

REPORT INFORMATION
  Report Type: Report from Study
  Country: IL (occurrence: IL)
  Receive Date: 20251202
  Receipt Date: 20251202
  Transmission Date: 20260118
  Serious: Yes (Hospitalization, Other)
  Sender: ABBVIE
  Company Number: IL-ABBVIE-6563621

PATIENT
  Age: 69 Year
  Sex: Female

DRUGS (3)
  1. CARBIDOPA\LEVODOPA [Suspect]
     Active Substance: CARBIDOPA\LEVODOPA
     Indication: Parkinson^s disease
     Route: 050
     Dates: start: 20210504
  2. CARBIDOPA\LEVODOPA [Suspect]
     Active Substance: CARBIDOPA\LEVODOPA
     Dosage: MORNING DOSAGE(ML): 3.5, ADDITIONAL TUBE FILING(ML): 3.0, CONTINUOUS DOSAGE (ML/H): 3.8, EXTRA DO...
     Route: 050
     Dates: start: 20250617, end: 20250617
  3. CARBIDOPA\LEVODOPA [Suspect]
     Active Substance: CARBIDOPA\LEVODOPA
     Route: 050
     Dates: start: 2025

REACTIONS (1)
  - Nephrolithiasis [Recovering/Resolving]

NARRATIVE: CASE EVENT DATE: 20250901
